FAERS Safety Report 6054599-2 (Version None)
Quarter: 2009Q1

REPORT INFORMATION
  Report Type: 
  Country: None (occurrence: None)
  Receive Date: 20090127
  Receipt Date: 20090120
  Transmission Date: 20090719
  Serious: Yes (Hospitalization, Disabling, Other)
  Sender: FDA-Public Use
  Company Number: US-MERCK-0805USA00741

PATIENT
  Age: 69 Year
  Sex: Female
  Weight: 54 kg

DRUGS (6)
  1. FOSAMAX [Suspect]
     Indication: SENILE OSTEOPOROSIS
     Route: 048
     Dates: start: 19970401, end: 20011001
  2. FOSAMAX [Suspect]
     Route: 048
     Dates: start: 20011001
  3. FOSAMAX [Suspect]
     Route: 048
     Dates: start: 20031001, end: 20061201
  4. ATENOLOL [Concomitant]
     Indication: HEART RATE IRREGULAR
     Route: 065
     Dates: start: 19980101
  5. SYNTHROID [Concomitant]
     Indication: HYPOTHYROIDISM
     Route: 065
  6. PREMARIN [Concomitant]
     Indication: HORMONE REPLACEMENT THERAPY
     Route: 065
     Dates: start: 19590101

REACTIONS (49)
  - ADVERSE DRUG REACTION [None]
  - ALOPECIA [None]
  - ANTIPHOSPHOLIPID ANTIBODIES POSITIVE [None]
  - ANXIETY [None]
  - ARTHRALGIA [None]
  - ARTHROPATHY [None]
  - ASTHENIA [None]
  - BACK PAIN [None]
  - BRONCHITIS CHRONIC [None]
  - BURSITIS [None]
  - CATARACT [None]
  - CELLULITIS [None]
  - CONFUSIONAL STATE [None]
  - CONSTIPATION [None]
  - CORNEAL ABRASION [None]
  - DEEP VEIN THROMBOSIS [None]
  - DENTAL CARIES [None]
  - DIARRHOEA [None]
  - DIZZINESS [None]
  - DRUG HYPERSENSITIVITY [None]
  - ECCHYMOSIS [None]
  - EDENTULOUS [None]
  - FALL [None]
  - GINGIVAL DISORDER [None]
  - HALLUCINATION [None]
  - HERPES ZOSTER [None]
  - INAPPROPRIATE SCHEDULE OF DRUG ADMINISTRATION [None]
  - INTERVERTEBRAL DISC DEGENERATION [None]
  - JOINT EFFUSION [None]
  - JOINT INJURY [None]
  - KNEE DEFORMITY [None]
  - LICHEN PLANUS [None]
  - LUNG DISORDER [None]
  - MOUTH ULCERATION [None]
  - OEDEMA PERIPHERAL [None]
  - ORAL TORUS [None]
  - OSTEOARTHRITIS [None]
  - OSTEOMYELITIS [None]
  - OSTEONECROSIS [None]
  - OVERDOSE [None]
  - PAIN IN EXTREMITY [None]
  - POLYP [None]
  - POSTNASAL DRIP [None]
  - SIALOADENITIS [None]
  - SINUSITIS [None]
  - SKIN LACERATION [None]
  - TOOTH ABSCESS [None]
  - TOOTH DISORDER [None]
  - VERTIGO [None]
